FAERS Safety Report 6064030-9 (Version None)
Quarter: 2009Q1

REPORT INFORMATION
  Report Type: 
  Country: None (occurrence: None)
  Receive Date: 20090203
  Receipt Date: 20090203
  Transmission Date: 20090719
  Serious: No
  Sender: FDA-Public Use
  Company Number: None

PATIENT
  Sex: Male
  Weight: 88.55 kg

DRUGS (12)
  1. TOPAMAX [Suspect]
     Dosage: 50 MG AS DIRECTED ORAL
     Route: 048
     Dates: start: 20080908, end: 20090112
  2. ABILIFY [Concomitant]
  3. ALENDRONATE SODIUM [Concomitant]
  4. ASPIRIN [Concomitant]
  5. DIAZEPAM [Concomitant]
  6. ERGOCALCIFEROL [Concomitant]
  7. LIPITOR [Concomitant]
  8. NASONEX [Concomitant]
  9. OMEPRAZOLE [Concomitant]
  10. PAXIL [Concomitant]
  11. TRAZODONE HCL [Concomitant]
  12. TRILEPTAL [Concomitant]

REACTIONS (2)
  - APHASIA [None]
  - PARAESTHESIA [None]
